FAERS Safety Report 23945359 (Version 1)
Quarter: 2024Q2

REPORT INFORMATION
  Report Type: Spontaneous
  Country: US (occurrence: US)
  Receive Date: 20240606
  Receipt Date: 20240606
  Transmission Date: 20240716
  Serious: Yes (Life-Threatening, Hospitalization)
  Sender: FDA-Public Use
  Company Number: US-MYLANLABS-2024M1050709

PATIENT
  Age: 34 Year
  Sex: Male

DRUGS (8)
  1. CLOZAPINE [Interacting]
     Active Substance: CLOZAPINE
     Indication: Bipolar disorder
     Dosage: 100 MILLIGRAM, QD
     Route: 065
  2. CLOZAPINE [Interacting]
     Active Substance: CLOZAPINE
     Dosage: 450 MILLIGRAM, QD; TITRATED OVER 3 MONTHS FROM 100 TO 450 MG DAILY
     Route: 065
  3. CLOZAPINE [Interacting]
     Active Substance: CLOZAPINE
     Dosage: UNK (LATER RESTARTED)
     Route: 065
  4. QUETIAPINE [Interacting]
     Active Substance: QUETIAPINE
     Indication: Bipolar disorder
     Dosage: 400 MILLIGRAM, BID
     Route: 065
  5. QUETIAPINE [Interacting]
     Active Substance: QUETIAPINE
     Dosage: UNK (LATER RESTARTED
     Route: 065
  6. BENZTROPINE [Interacting]
     Active Substance: BENZTROPINE
     Indication: Extrapyramidal disorder
     Dosage: UNK
     Route: 065
  7. BENZTROPINE [Interacting]
     Active Substance: BENZTROPINE
     Dosage: UNK (RESTARTED)
     Route: 065
  8. SENNA LEAF [Concomitant]
     Active Substance: SENNA LEAF
     Indication: Constipation
     Dosage: UNK
     Route: 065

REACTIONS (12)
  - Drug interaction [Unknown]
  - Gastrointestinal hypomotility [Unknown]
  - Loss of consciousness [Unknown]
  - Pulse abnormal [Unknown]
  - Stupor [Unknown]
  - Dehydration [Unknown]
  - Septic shock [Unknown]
  - Clostridium test positive [Unknown]
  - Intestinal obstruction [Unknown]
  - Enteritis [Unknown]
  - Drug ineffective [Unknown]
  - Off label use [Unknown]
